FAERS Safety Report 6953012-8 (Version None)
Quarter: 2010Q3

REPORT INFORMATION
  Report Type: 
  Country: None (occurrence: None)
  Receive Date: 20100829
  Receipt Date: 20100526
  Transmission Date: 20110219
  Serious: No
  Sender: FDA-Public Use
  Company Number: US-ABBOTT-10P-163-0647124-00

PATIENT
  Sex: Male
  Weight: 118.04 kg

DRUGS (3)
  1. NIASPAN [Suspect]
     Indication: PRODUCT USED FOR UNKNOWN INDICATION
     Dosage: 500MG
     Dates: start: 20100301, end: 20100401
  2. NIASPAN [Suspect]
     Dosage: 1000MG
     Dates: start: 20100401
  3. ASPIRIN [Concomitant]
     Indication: PRODUCT USED FOR UNKNOWN INDICATION
     Dosage: PRIOR TO NIASPAN

REACTIONS (5)
  - FLUSHING [None]
  - PARAESTHESIA [None]
  - RASH PRURITIC [None]
  - SKIN BURNING SENSATION [None]
  - TINNITUS [None]
